FAERS Safety Report 7620757-6 (Version None)
Quarter: 2011Q3

REPORT INFORMATION
  Report Type: 
  Country: None (occurrence: None)
  Receive Date: 20110719
  Receipt Date: 20110705
  Transmission Date: 20111222
  Serious: Yes (Other)
  Sender: FDA-Public Use
  Company Number: US-SANOFI-AVENTIS-2011SA044368

PATIENT
  Age: 75 Year
  Sex: Female
  Weight: 89 kg

DRUGS (6)
  1. WARFARIN SODIUM [Concomitant]
     Route: 065
  2. ATORVASTATIN [Concomitant]
     Route: 065
  3. THIAZIDES [Concomitant]
     Route: 065
  4. DRONEDARONE HCL [Suspect]
     Indication: ATRIAL FIBRILLATION
     Route: 048
     Dates: start: 20101129, end: 20110518
  5. ASPIRIN [Concomitant]
     Route: 065
  6. CARVEDILOL [Concomitant]
     Route: 065

REACTIONS (1)
  - CARDIAC FAILURE [None]
